FAERS Safety Report 7920157-5 (Version None)
Quarter: 2011Q4

REPORT INFORMATION
  Report Type: 
  Country: None (occurrence: None)
  Receive Date: 20111117
  Receipt Date: 20111107
  Transmission Date: 20120403
  Serious: Yes (Other)
  Sender: FDA-Public Use
  Company Number: US-BAYER-2011-042778

PATIENT
  Age: 14 Year
  Sex: Female

DRUGS (1)
  1. YAZ [Suspect]
     Indication: ACNE
     Dosage: UNK
     Dates: start: 20090501

REACTIONS (7)
  - PAIN [None]
  - SYNCOPE [None]
  - CHEST PAIN [None]
  - BRONCHOSPASM [None]
  - PULMONARY EMBOLISM [None]
  - DRUG HYPERSENSITIVITY [None]
  - INJURY [None]
